FAERS Safety Report 25797882 (Version 2)
Quarter: 2025Q3

REPORT INFORMATION
  Report Type: Spontaneous
  Country: EU (occurrence: EU)
  Receive Date: 20250912
  Receipt Date: 20250930
  Transmission Date: 20251021
  Serious: Yes (Hospitalization)
  Sender: NOVO NORDISK
  Company Number: EU-NOVOPROD-1516107

PATIENT
  Age: 83 Year
  Sex: Male

DRUGS (2)
  1. NOVORAPID [Suspect]
     Active Substance: INSULIN ASPART
     Indication: Type 2 diabetes mellitus
  2. CORTISONE [Concomitant]
     Active Substance: CORTISONE
     Indication: Giant cell arteritis

REACTIONS (1)
  - Blood glucose increased [Unknown]
